FAERS Safety Report 8838631 (Version 3)
Quarter: 2013Q4

REPORT INFORMATION
  Report Type: Spontaneous
  Country: US (occurrence: US)
  Receive Date: 20121012
  Receipt Date: 20131101
  Transmission Date: 20140711
  Serious: No
  Sender: FDA-Public Use
  Company Number: US-009507513-1210USA001602

PATIENT
  Age: 20 Year
  Sex: Female
  Weight: 79.37 kg

DRUGS (3)
  1. NUVARING [Suspect]
     Indication: CONTRACEPTION
     Dosage: 0.015MG
     Route: 067
     Dates: start: 20120816
  2. NUVARING [Suspect]
     Dosage: 0.015MG
     Route: 067
     Dates: start: 20120924
  3. [THERAPY UNSPECIFIED] [Concomitant]

REACTIONS (3)
  - Vaginal discharge [Not Recovered/Not Resolved]
  - Vaginal odour [Not Recovered/Not Resolved]
  - Device expulsion [Unknown]
